FAERS Safety Report 5994035-5 (Version None)
Quarter: 2008Q4

REPORT INFORMATION
  Report Type: 
  Country: None (occurrence: None)
  Receive Date: 20081212
  Receipt Date: 20081204
  Transmission Date: 20090506
  Serious: Yes (Hospitalization)
  Sender: FDA-Public Use
  Company Number: US-ABBOTT-08P-163-0490986-00

PATIENT
  Sex: Female

DRUGS (13)
  1. HUMIRA [Suspect]
     Indication: RHEUMATOID ARTHRITIS
     Route: 058
     Dates: start: 20060101, end: 20081119
  2. METFORMIN HCL [Concomitant]
     Indication: DIABETES MELLITUS
     Route: 048
  3. INSULIN GLARGINE [Concomitant]
     Indication: DIABETES MELLITUS
     Route: 058
  4. NOVOLOG [Concomitant]
     Indication: DIABETES MELLITUS
     Route: 058
  5. SIMVACORT [Concomitant]
     Indication: ASTHMA
     Route: 055
  6. SERETIDE [Concomitant]
     Indication: ASTHMA
     Route: 055
  7. ALBUTEROL [Concomitant]
     Indication: ASTHMA
     Route: 055
  8. SINGULAIR [Concomitant]
     Indication: ASTHMA
  9. ALLEGRA [Concomitant]
     Indication: ASTHMA
  10. BENECAR [Concomitant]
     Indication: HYPERTENSION
     Route: 048
  11. METOPROLOL TARTRATE [Concomitant]
     Indication: HYPERTENSION
     Route: 048
  12. PREDNISONE TAB [Concomitant]
     Indication: DRUG USE FOR UNKNOWN INDICATION
     Route: 048
  13. NEXIUM [Concomitant]
     Indication: DRUG USE FOR UNKNOWN INDICATION

REACTIONS (5)
  - BLOOD PRESSURE DECREASED [None]
  - FATIGUE [None]
  - PNEUMONIA [None]
  - PYREXIA [None]
  - WHITE BLOOD CELL COUNT INCREASED [None]
